FAERS Safety Report 5260007-1 (Version None)
Quarter: 2007Q1

REPORT INFORMATION
  Report Type: 
  Country: None (occurrence: None)
  Receive Date: 20070309
  Receipt Date: 20060131
  Transmission Date: 20070707
  Serious: Yes (Other)
  Sender: FDA-Public Use
  Company Number: US-GLAXOSMITHKLINE-A0591432A

PATIENT
  Age: 44 Year
  Sex: Male

DRUGS (6)
  1. NICORETTE [Suspect]
     Dosage: 2MG UNKNOWN
  2. NICODERM CQ [Suspect]
  3. COMMIT [Suspect]
  4. XANAX [Concomitant]
  5. ANTI-INFLAMMATORY [Concomitant]
  6. UNKNOWN STOMACH MEDICATION [Concomitant]

REACTIONS (2)
  - DRUG ABUSER [None]
  - INTENTIONAL DRUG MISUSE [None]
